FAERS Safety Report 5217988-1 (Version None)
Quarter: 2007Q1

REPORT INFORMATION
  Report Type: 
  Country: None (occurrence: None)
  Receive Date: 20061130
  Receipt Date: 20060807
  Transmission Date: 20070707
  Serious: Yes (Other)
  Sender: FDA-Public Use
  Company Number: US200607001182

PATIENT
  Sex: Female
  Weight: 70.3 kg

DRUGS (5)
  1. ZYPREXA [Suspect]
     Indication: ANXIETY
     Dosage: SEE IMAGE
     Dates: start: 20001028, end: 20040330
  2. DEPAKOTE [Concomitant]
  3. CELEXA [Concomitant]
  4. ZOLOFT [Concomitant]
  5. EFFEXOR [Concomitant]

REACTIONS (3)
  - DIABETES MELLITUS [None]
  - KETOACIDOSIS [None]
  - METABOLIC DISORDER [None]
